FAERS Safety Report 8189379-5 (Version None)
Quarter: 2012Q1

REPORT INFORMATION
  Report Type: 
  Country: None (occurrence: None)
  Receive Date: 20120307
  Receipt Date: 20120228
  Transmission Date: 20120608
  Serious: Yes (Hospitalization)
  Sender: FDA-Public Use
  Company Number: US-BAYER-2011-085489

PATIENT
  Age: 30 Year
  Sex: Female
  Weight: 72.562 kg

DRUGS (6)
  1. PROPRANOLOL [Concomitant]
     Dosage: 20 MG, TID
  2. MULTI-VITAMIN [Concomitant]
  3. LEVOTHYROXINE SODIUM [Concomitant]
     Indication: HYPOTHYROIDISM
     Dosage: 100 ?G, QD
     Dates: start: 20060101
  4. METOPROLOL TARTRATE [Concomitant]
     Indication: ESSENTIAL TREMOR
  5. YAZ [Suspect]
     Indication: PREMENSTRUAL SYNDROME
     Dosage: UNK
     Dates: end: 20070101
  6. METOPROLOL TARTRATE [Concomitant]
     Indication: HEART RATE IRREGULAR
     Dosage: UNK
     Dates: start: 20070101, end: 20080101

REACTIONS (4)
  - PULMONARY EMBOLISM [None]
  - INJURY [None]
  - PAIN [None]
  - FEAR [None]
